FAERS Safety Report 5066133-4 (Version None)
Quarter: 2006Q3

REPORT INFORMATION
  Report Type: 
  Country: None (occurrence: None)
  Receive Date: 20060725
  Receipt Date: 20060705
  Transmission Date: 20061208
  Serious: Yes (Hospitalization)
  Sender: FDA-Public Use
  Company Number: MAG-2006-0000463

PATIENT
  Age: 61 Year
  Sex: Male

DRUGS (6)
  1. OXYCODONE HCL CR [Suspect]
     Indication: CANCER PAIN
     Dosage: 5 MG TID ORAL
     Route: 048
     Dates: start: 20060621, end: 20060621
  2. FAMOTIDINE [Concomitant]
  3. 8-HOUR BAYER [Concomitant]
  4. CALCIUM CARBONATE (CALCIUM CARBONATE) [Concomitant]
  5. ESTAZOLAM [Concomitant]
  6. FENTANYL [Concomitant]

REACTIONS (9)
  - ALANINE AMINOTRANSFERASE INCREASED [None]
  - ASPARTATE AMINOTRANSFERASE INCREASED [None]
  - ASTHENIA [None]
  - BLOOD ALKALINE PHOSPHATASE INCREASED [None]
  - BLOOD LACTATE DEHYDROGENASE INCREASED [None]
  - DYSURIA [None]
  - GAMMA-GLUTAMYLTRANSFERASE INCREASED [None]
  - LIVER DISORDER [None]
  - NAUSEA [None]
